FAERS Safety Report 10658192 (Version 1)
Quarter: 2014Q4

REPORT INFORMATION
  Report Type: Spontaneous
  Country: US (occurrence: None)
  Receive Date: 20141216
  Receipt Date: 20141216
  Transmission Date: 20150529
  Serious: Yes (Other)
  Sender: FDA-Public Use
  Company Number: None

PATIENT
  Age: 81 Year
  Sex: Female

DRUGS (7)
  1. IMBRUVICA [Suspect]
     Active Substance: IBRUTINIB
     Indication: CHRONIC LYMPHOCYTIC LEUKAEMIA
     Route: 048
  2. FASLODEX [Concomitant]
     Active Substance: FULVESTRANT
  3. ARIMIDEX [Concomitant]
     Active Substance: ANASTROZOLE
  4. XALATAN [Concomitant]
     Active Substance: LATANOPROST
  5. TAMOXIFEN [Concomitant]
     Active Substance: TAMOXIFEN
  6. COMBIGAN [Concomitant]
     Active Substance: BRIMONIDINE TARTRATE\TIMOLOL MALEATE
  7. ASPIRIN. [Concomitant]
     Active Substance: ASPIRIN

REACTIONS (2)
  - Tumour marker increased [None]
  - Metastases to bone [None]

NARRATIVE: CASE EVENT DATE: 20141203
